FAERS Safety Report 5455824-9 (Version None)
Quarter: 2007Q3

REPORT INFORMATION
  Report Type: 
  Country: None (occurrence: None)
  Receive Date: 20070918
  Receipt Date: 20070228
  Transmission Date: 20080115
  Serious: Yes (Other)
  Sender: FDA-Public Use
  Company Number: US-ASTRAZENECA-2006UW22859

PATIENT
  Age: 38 Year
  Sex: Male
  Weight: 81.8 kg

DRUGS (3)
  1. SEROQUEL [Suspect]
     Indication: INSOMNIA
     Route: 048
     Dates: start: 20011001, end: 20060201
  2. SEROQUEL [Suspect]
     Indication: ANXIETY
     Route: 048
     Dates: start: 20011001, end: 20060201
  3. CRACK COCAINE [Concomitant]
     Dates: start: 20060701, end: 20060901

REACTIONS (2)
  - DIABETES MELLITUS [None]
  - PANCREATITIS [None]
